FAERS Safety Report 12995544 (Version 2)
Quarter: 2016Q4

REPORT INFORMATION
  Report Type: Spontaneous
  Country: US (occurrence: US)
  Receive Date: 20161202
  Receipt Date: 20161222
  Transmission Date: 20170207
  Serious: Yes (Death, Hospitalization)
  Sender: FDA-Public Use
  Company Number: US-RELYPSA-RLY2016003722

PATIENT
  Age: 82 Year
  Sex: Female

DRUGS (14)
  1. VITAMIN B12 [Concomitant]
     Active Substance: CYANOCOBALAMIN
  2. VITAMIN D                          /00107901/ [Concomitant]
     Active Substance: ERGOCALCIFEROL
  3. VELTASSA [Suspect]
     Active Substance: PATIROMER
     Indication: HYPERKALAEMIA
     Dosage: 8.4 G, QD
     Route: 048
     Dates: start: 20161028, end: 20161111
  4. DILTIAZEM CD [Concomitant]
     Active Substance: DILTIAZEM
  5. SODIUM BICARBONATE. [Concomitant]
     Active Substance: SODIUM BICARBONATE
  6. OXYCODONE [Concomitant]
     Active Substance: OXYCODONE
  7. VITAMIN D3 [Concomitant]
     Active Substance: CHOLECALCIFEROL
  8. INSULIN [Concomitant]
     Active Substance: INSULIN NOS
  9. LISINOPRIL. [Concomitant]
     Active Substance: LISINOPRIL
  10. LEVEMIR [Concomitant]
     Active Substance: INSULIN DETEMIR
  11. TRAZODONE HYDROCHLORIDE. [Concomitant]
     Active Substance: TRAZODONE HYDROCHLORIDE
  12. MULTIVITAMIN [Concomitant]
     Active Substance: VITAMINS
  13. SYNTHROID [Concomitant]
     Active Substance: LEVOTHYROXINE SODIUM
  14. LASIX [Concomitant]
     Active Substance: FUROSEMIDE

REACTIONS (3)
  - Hospice care [Unknown]
  - Cardiac disorder [Unknown]
  - Cardiac failure [Fatal]

NARRATIVE: CASE EVENT DATE: 20161107
